FAERS Safety Report 23303945 (Version 1)
Quarter: 2023Q4

REPORT INFORMATION
  Report Type: Spontaneous
  Country: US (occurrence: US)
  Receive Date: 20231215
  Receipt Date: 20231215
  Transmission Date: 20240110
  Serious: No
  Sender: FDA-Public Use
  Company Number: US-PFIZER INC-PV202300197835

PATIENT
  Age: 70 Year
  Sex: Female

DRUGS (3)
  1. PROCARDIA [Suspect]
     Active Substance: NIFEDIPINE
     Dosage: UNK
  2. LOSARTAN [Suspect]
     Active Substance: LOSARTAN
     Dosage: UNK
  3. KISQALI [Suspect]
     Active Substance: RIBOCICLIB
     Dosage: UNK

REACTIONS (2)
  - Dizziness [Unknown]
  - Paraesthesia [Unknown]
